FAERS Safety Report 4643148-9 (Version None)
Quarter: 2005Q2

REPORT INFORMATION
  Report Type: 
  Country: None (occurrence: None)
  Receive Date: 20050421
  Receipt Date: 20050408
  Transmission Date: 20051028
  Serious: Yes (Hospitalization)
  Sender: FDA-Public Use
  Company Number: 2005056922

PATIENT
  Age: 80 Year
  Sex: Female

DRUGS (2)
  1. ZOLOFT [Suspect]
     Indication: ILL-DEFINED DISORDER
     Dosage: 1 IN 1 D
  2. AMIODARONE HCL [Concomitant]

REACTIONS (1)
  - CYTOLYTIC HEPATITIS [None]
